FAERS Safety Report 5206150-4 (Version None)
Quarter: 2007Q1

REPORT INFORMATION
  Report Type: 
  Country: None (occurrence: None)
  Receive Date: 20070108
  Receipt Date: 20061226
  Transmission Date: 20070707
  Serious: Yes (Hospitalization)
  Sender: FDA-Public Use
  Company Number: CERZ-11403

PATIENT
  Age: 52 Year
  Sex: Male
  Weight: 80.5 kg

DRUGS (1)
  1. CEREZYME [Suspect]
     Indication: GAUCHER'S DISEASE
     Dosage: 3400 UNITS Q2WKS IV
     Route: 042
     Dates: start: 19940101

REACTIONS (2)
  - OSTEONECROSIS [None]
  - RHEUMATOID ARTHRITIS [None]
